FAERS Safety Report 7504182-4 (Version None)
Quarter: 2011Q2

REPORT INFORMATION
  Report Type: 
  Country: None (occurrence: None)
  Receive Date: 20110525
  Receipt Date: 20110512
  Transmission Date: 20111010
  Serious: Yes (Hospitalization, Other)
  Sender: FDA-Public Use
  Company Number: US-ELI_LILLY_AND_COMPANY-US201104000227

PATIENT
  Sex: Female

DRUGS (3)
  1. FORTEO [Suspect]
     Dosage: 20 UG, QD
  2. FORTEO [Suspect]
     Indication: OSTEOPOROSIS
     Dosage: 20 UG, QD
     Dates: start: 20110201
  3. FORTEO [Suspect]
     Dosage: 20 UG, QD

REACTIONS (10)
  - FEELING HOT [None]
  - SURGERY [None]
  - HYPOKINESIA [None]
  - INJECTION SITE HAEMATOMA [None]
  - HOSPITALISATION [None]
  - FEMUR FRACTURE [None]
  - MENISCUS LESION [None]
  - SCAR [None]
  - BONE PAIN [None]
  - DECREASED ACTIVITY [None]
